FAERS Safety Report 5695439-0 (Version None)
Quarter: 2008Q2

REPORT INFORMATION
  Report Type: 
  Country: None (occurrence: None)
  Receive Date: 20080403
  Receipt Date: 20080327
  Transmission Date: 20081010
  Serious: Yes (Other)
  Sender: FDA-Public Use
  Company Number: 2008SP005499

PATIENT
  Sex: Female
  Weight: 57.1532 kg

DRUGS (2)
  1. PEG-INTRON [Suspect]
     Indication: HEPATITIS C
     Dosage: SC
     Route: 058
     Dates: start: 20080107, end: 20080319
  2. RIBAVIRIN [Suspect]
     Indication: HEPATITIS C
     Dosage: PO
     Route: 048
     Dates: start: 20080107, end: 20080319

REACTIONS (22)
  - ALOPECIA [None]
  - ANOREXIA [None]
  - ASTHENIA [None]
  - BLOOD BLISTER [None]
  - BLOOD COUNT ABNORMAL [None]
  - CONFUSIONAL STATE [None]
  - CONTUSION [None]
  - DYSPEPSIA [None]
  - EAR DISCOMFORT [None]
  - EPISTAXIS [None]
  - FALL [None]
  - FLUID INTAKE REDUCED [None]
  - HEPATIC PAIN [None]
  - HYPOTONIA [None]
  - MENTAL DISORDER [None]
  - MIGRAINE [None]
  - NAUSEA [None]
  - PAIN [None]
  - PAIN IN EXTREMITY [None]
  - PARAESTHESIA [None]
  - PLATELET COUNT DECREASED [None]
  - WEIGHT DECREASED [None]
